FAERS Safety Report 8030678-5 (Version None)
Quarter: 2012Q1

REPORT INFORMATION
  Report Type: 
  Country: None (occurrence: None)
  Receive Date: 20120105
  Receipt Date: 20120104
  Transmission Date: 20120608
  Serious: Yes (Other)
  Sender: FDA-Public Use
  Company Number: 1000025683

PATIENT
  Sex: Female

DRUGS (7)
  1. BAYER ASPIRIN (ACETYLSALICYLIC ACID) (ACETYLSALICYLIC ACID) [Concomitant]
  2. LISINOPRIL [Concomitant]
  3. VIIBRYD [Suspect]
     Indication: DEPRESSION
     Dosage: 10 MG (10 MG, 1 IN 1 D), ORAL, 10 MG (10 MG, 1 IN 1 D), ORAL
     Route: 048
     Dates: start: 20111115, end: 20111122
  4. VIIBRYD [Suspect]
     Indication: DEPRESSION
     Dosage: 10 MG (10 MG, 1 IN 1 D), ORAL, 10 MG (10 MG, 1 IN 1 D), ORAL
     Route: 048
     Dates: start: 20111123, end: 20111101
  5. LEVOTHYROXINE SODIUM [Suspect]
     Indication: HYPOTHYROIDISM
     Dosage: 88 MG (88 MG, 1 IN 1 D), ORAL, 100 MG (100 MG, 1 IN 1 D), ORAL
     Route: 048
     Dates: end: 20111114
  6. LEVOTHYROXINE SODIUM [Suspect]
     Indication: HYPOTHYROIDISM
     Dosage: 88 MG (88 MG, 1 IN 1 D), ORAL, 100 MG (100 MG, 1 IN 1 D), ORAL
     Route: 048
     Dates: start: 20111115
  7. NORVASC [Concomitant]

REACTIONS (3)
  - BLOOD PRESSURE INCREASED [None]
  - TINNITUS [None]
  - INSOMNIA [None]
